FAERS Safety Report 23204572 (Version 2)
Quarter: 2023Q4

REPORT INFORMATION
  Report Type: Spontaneous
  Country: FR (occurrence: FR)
  Receive Date: 20231120
  Receipt Date: 20231129
  Transmission Date: 20240109
  Serious: Yes (Other)
  Sender: FDA-Public Use
  Company Number: FR-AFSSAPS-AN20210007

PATIENT
  Age: 57 Year
  Sex: Female
  Weight: 50 kg

DRUGS (12)
  1. OMEPRAZOLE [Suspect]
     Active Substance: OMEPRAZOLE
     Indication: Gastrooesophageal reflux disease
     Dosage: DOSE DESCRIPTION : 20 MG
     Route: 048
  2. CETIRIZINE HYDROCHLORIDE [Suspect]
     Active Substance: CETIRIZINE HYDROCHLORIDE
     Indication: Prophylaxis of nausea and vomiting
     Dosage: DOSE DESCRIPTION : 10 MG
     Route: 048
  3. LEVOCETIRIZINE [Suspect]
     Active Substance: LEVOCETIRIZINE
     Indication: Prophylaxis of nausea and vomiting
     Dosage: 10 MG, QCY
     Route: 065
  4. CIMETIDINE [Suspect]
     Active Substance: CIMETIDINE
     Indication: Prophylaxis of nausea and vomiting
     Dosage: DOSE DESCRIPTION : 1000 MG QCY
     Route: 048
  5. TRASTUZUMAB [Suspect]
     Active Substance: TRASTUZUMAB
     Indication: Breast cancer metastatic
     Dosage: DOSE DESCRIPTION : 294 MG CYCLICAL
     Route: 042
     Dates: start: 20200302
  6. PACLITAXEL [Suspect]
     Active Substance: PACLITAXEL
     Indication: Breast cancer metastatic
     Dosage: DOSE DESCRIPTION : 114 MG, CYCLIC, QCY
     Route: 042
     Dates: start: 20200309, end: 20200825
  7. PREDNISOLONE [Suspect]
     Active Substance: PREDNISOLONE
     Indication: Prophylaxis of nausea and vomiting
     Dosage: DOSE DESCRIPTION : 40 MG QCY
     Route: 048
  8. MORPHINE SULFATE [Suspect]
     Active Substance: MORPHINE SULFATE
     Indication: Pain
     Dosage: DOSE DESCRIPTION : 1 DF
     Route: 048
  9. CAPECITABINE [Suspect]
     Active Substance: CAPECITABINE
     Indication: Breast cancer metastatic
     Dosage: DOSE DESCRIPTION : 10000 MG, QW
     Route: 048
     Dates: start: 2019, end: 20200908
  10. PERTUZUMAB [Suspect]
     Active Substance: PERTUZUMAB
     Indication: Breast cancer metastatic
     Dosage: DOSE DESCRIPTION : 420 MG QCY
     Route: 042
     Dates: start: 20200302
  11. TOUJEO [Suspect]
     Active Substance: INSULIN GLARGINE
     Indication: Insulin-requiring type 2 diabetes mellitus
     Dosage: DOSE DESCRIPTION : 12 IU
     Route: 058
  12. MORPHINE SULFATE [Suspect]
     Active Substance: MORPHINE SULFATE
     Indication: Pain
     Dosage: DOSE DESCRIPTION : 1 DF
     Route: 048

REACTIONS (2)
  - Visual acuity reduced [Recovered/Resolved]
  - Keratitis [Recovered/Resolved]

NARRATIVE: CASE EVENT DATE: 20200601
